FAERS Safety Report 7087191-1 (Version None)
Quarter: 2010Q4

REPORT INFORMATION
  Report Type: 
  Country: None (occurrence: None)
  Receive Date: 20101106
  Receipt Date: 20101102
  Transmission Date: 20110411
  Serious: No
  Sender: FDA-Public Use
  Company Number: US-WYE-H18512210

PATIENT
  Sex: Male
  Weight: 57.66 kg

DRUGS (8)
  1. PRISTIQ [Suspect]
     Indication: DEPRESSION
     Route: 048
     Dates: start: 20090101
  2. RESTORIL [Concomitant]
  3. ALBUTEROL [Concomitant]
  4. AZILECT [Concomitant]
  5. SAPHRIS [Concomitant]
  6. LEVOTHYROXINE [Concomitant]
  7. REQUIP [Concomitant]
  8. SINEMET [Concomitant]

REACTIONS (3)
  - INSOMNIA [None]
  - TERMINAL INSOMNIA [None]
  - UNEVALUABLE EVENT [None]
